FAERS Safety Report 7656036-0 (Version None)
Quarter: 2011Q3

REPORT INFORMATION
  Report Type: 
  Country: None (occurrence: None)
  Receive Date: 20110804
  Receipt Date: 20110720
  Transmission Date: 20111222
  Serious: Yes (Other)
  Sender: FDA-Public Use
  Company Number: US-ELI_LILLY_AND_COMPANY-US201105005007

PATIENT
  Sex: Female
  Weight: 70.7 kg

DRUGS (11)
  1. ADVAIR DISKUS 100/50 [Concomitant]
  2. HYDROXYZINE HCL [Concomitant]
  3. DIOVAN [Concomitant]
  4. LASIX [Concomitant]
  5. PREDNISONE [Concomitant]
     Dosage: 2 MG, QD
  6. ATIVAN [Concomitant]
  7. NITROSTAT [Concomitant]
  8. TRAMADOL HCL [Concomitant]
  9. FORTEO [Suspect]
     Indication: OSTEOPOROSIS
     Dosage: 20 UG, QD
     Route: 058
     Dates: start: 20100330
  10. CORTICOSTEROIDS [Concomitant]
     Indication: URTICARIA
  11. SYNTHROID [Concomitant]

REACTIONS (3)
  - FALL [None]
  - OSTEOARTHRITIS [None]
  - FEMUR FRACTURE [None]
